FAERS Safety Report 8513873-8 (Version None)
Quarter: 2012Q2

REPORT INFORMATION
  Report Type: 
  Country: None (occurrence: None)
  Receive Date: 20120406
  Receipt Date: 20101129
  Transmission Date: 20120825
  Serious: Yes (Other)
  Sender: FDA-Public Use
  Company Number: PHHY2010US68320

PATIENT
  Age: 52 Year
  Sex: Female

DRUGS (1)
  1. TASIGNA [Suspect]
     Indication: CHRONIC MYELOID LEUKAEMIA
     Dosage: 300 MG, BID, ORAL ; 400 MG, BID, ORAL
     Route: 048
     Dates: start: 20090907

REACTIONS (8)
  - HEADACHE [None]
  - PAIN [None]
  - STENT PLACEMENT [None]
  - NAUSEA [None]
  - CHEST PAIN [None]
  - ELECTROCARDIOGRAM ABNORMAL [None]
  - DYSPEPSIA [None]
  - ATRIOVENTRICULAR BLOCK [None]
